FAERS Safety Report 17951490 (Version 2)
Quarter: 2021Q1

REPORT INFORMATION
  Report Type: Report from Study
  Country: BR (occurrence: BR)
  Receive Date: 20200626
  Receipt Date: 20210204
  Transmission Date: 20210419
  Serious: Yes (Other)
  Sender: FDA-Public Use
  Company Number: NVSC2020BR180654

PATIENT
  Age: 48 Year
  Sex: Male

DRUGS (2)
  1. COSENTYX [Suspect]
     Active Substance: SECUKINUMAB
     Dosage: 300 MG, Q2W (EVERY 15 DAYS)
     Route: 065
     Dates: start: 202011
  2. COSENTYX [Suspect]
     Active Substance: SECUKINUMAB
     Indication: ANKYLOSING SPONDYLITIS
     Dosage: UNK, QMO
     Route: 065
     Dates: start: 20200601

REACTIONS (14)
  - Arthropathy [Unknown]
  - Withdrawal syndrome [Unknown]
  - Diarrhoea [Recovering/Resolving]
  - Pain [Recovering/Resolving]
  - Pyrexia [Recovering/Resolving]
  - Gait disturbance [Recovering/Resolving]
  - COVID-19 [Recovering/Resolving]
  - Ageusia [Recovering/Resolving]
  - Limb discomfort [Unknown]
  - Drug ineffective [Unknown]
  - Depressed mood [Unknown]
  - Headache [Recovering/Resolving]
  - Spinal disorder [Unknown]
  - Inappropriate schedule of product administration [Not Recovered/Not Resolved]

NARRATIVE: CASE EVENT DATE: 20200606
